FAERS Safety Report 9387861 (Version 3)
Quarter: 2013Q3

REPORT INFORMATION
  Report Type: Spontaneous
  Country: US (occurrence: US)
  Receive Date: 20130708
  Receipt Date: 20130723
  Transmission Date: 20140515
  Serious: Yes (Hospitalization, Other)
  Sender: FDA-Public Use
  Company Number: US-BAXTER-2013BAX025455

PATIENT
  Age: 64 Year
  Sex: Male

DRUGS (1)
  1. DIANEAL LOW CALCIUM [Suspect]
     Indication: PERITONEAL DIALYSIS
     Route: 033

REACTIONS (5)
  - Pneumonia [Recovering/Resolving]
  - Sepsis [Recovering/Resolving]
  - Escherichia urinary tract infection [Recovering/Resolving]
  - Peritonitis bacterial [Recovering/Resolving]
  - Hypotension [Recovering/Resolving]
